FAERS Safety Report 5511719-3 (Version None)
Quarter: 2007Q4

REPORT INFORMATION
  Report Type: 
  Country: None (occurrence: None)
  Receive Date: 20071109
  Receipt Date: 20071101
  Transmission Date: 20080405
  Serious: Yes (Other)
  Sender: FDA-Public Use
  Company Number: US-SANOFI-SYNTHELABO-A03200700452

PATIENT
  Sex: Male
  Weight: 61.2 kg

DRUGS (9)
  1. TAMSULOSIN HCL [Concomitant]
     Indication: DRUG USE FOR UNKNOWN INDICATION
     Route: 048
  2. PHENYTOIN [Concomitant]
     Dosage: 100 MG (2 CAPSULES) BID
     Route: 048
  3. NITROGLYCERIN [Concomitant]
     Indication: CHEST PAIN
     Route: 060
  4. LAMOTRIGINE [Concomitant]
     Route: 048
  5. LOVASTATIN [Concomitant]
     Indication: DRUG USE FOR UNKNOWN INDICATION
     Route: 048
  6. ATENOLOL [Concomitant]
     Indication: DRUG USE FOR UNKNOWN INDICATION
     Dosage: 50 MG (2 TABLETS) BID
     Route: 048
  7. PLAVIX [Suspect]
     Indication: MYOCARDIAL INFARCTION
     Route: 048
     Dates: start: 20010207, end: 20010328
  8. NITROGLYCERIN [Concomitant]
     Indication: DRUG USE FOR UNKNOWN INDICATION
     Route: 061
  9. ASPIRIN [Concomitant]
     Indication: CEREBROVASCULAR ACCIDENT
     Route: 048
     Dates: start: 19990101

REACTIONS (19)
  - AMNESIA [None]
  - ANGIOEDEMA [None]
  - ANTICONVULSANT DRUG LEVEL INCREASED [None]
  - ASTHENIA [None]
  - CHEST PAIN [None]
  - CONVULSION [None]
  - DRUG INTERACTION [None]
  - DYSPNOEA [None]
  - FATIGUE [None]
  - FEELING OF BODY TEMPERATURE CHANGE [None]
  - HYPOAESTHESIA [None]
  - INSOMNIA [None]
  - MUSCULOSKELETAL PAIN [None]
  - NIGHT SWEATS [None]
  - PAIN [None]
  - PAIN OF SKIN [None]
  - PARAESTHESIA [None]
  - STOMACH DISCOMFORT [None]
  - TREMOR [None]
